FAERS Safety Report 4816742-X (Version None)
Quarter: 2005Q4

REPORT INFORMATION
  Report Type: 
  Country: None (occurrence: None)
  Receive Date: 20051101
  Receipt Date: 20050323
  Transmission Date: 20060501
  Serious: No
  Sender: FDA-Public Use
  Company Number: CEL-2005-00258-R

PATIENT
  Age: 10 Year
  Sex: Female

DRUGS (2)
  1. AMOXICILLIN [Suspect]
     Indication: DRUG USE FOR UNKNOWN INDICATION
     Route: 065
     Dates: start: 20050214
  2. METADATE CD [Suspect]
     Indication: DRUG USE FOR UNKNOWN INDICATION
     Dosage: 30MG SINGLE DOSE
     Route: 048
     Dates: start: 20050213, end: 20050213

REACTIONS (2)
  - INFLUENZA [None]
  - RASH [None]
